FAERS Safety Report 7499262-6 (Version None)
Quarter: 2011Q2

REPORT INFORMATION
  Report Type: 
  Country: None (occurrence: None)
  Receive Date: 20110524
  Receipt Date: 20110520
  Transmission Date: 20111010
  Serious: Yes (Death)
  Sender: FDA-Public Use
  Company Number: JP-SANOFI-AVENTIS-200511756JP

PATIENT
  Age: 62 Year
  Sex: Male

DRUGS (11)
  1. OMEPRAZOLE [Concomitant]
  2. FEXOFENADINE HCL [Suspect]
     Indication: ECZEMA
     Route: 048
  3. FUROSEMIDE [Concomitant]
  4. CALCIUM CARBONATE [Concomitant]
  5. SLOW-K [Concomitant]
  6. RISUMIC [Concomitant]
  7. PROMAC /JPN/ [Concomitant]
  8. CILOSTAZOL [Concomitant]
  9. LANSOPRAZOLE [Concomitant]
  10. HALCION [Concomitant]
  11. BENZALIN [Concomitant]

REACTIONS (1)
  - AGRANULOCYTOSIS [None]
